FAERS Safety Report 16525474 (Version 3)
Quarter: 2019Q3

REPORT INFORMATION
  Report Type: Report from Study
  Country: None (occurrence: GR)
  Receive Date: 20190702
  Receipt Date: 20190726
  Transmission Date: 20191004
  Serious: No
  Sender: FDA-Public Use
  Company Number: GR-ABBVIE-19S-066-2812789-00

PATIENT
  Age: 63 Year
  Sex: Male
  Weight: 60 kg

DRUGS (11)
  1. STALEVO [Concomitant]
     Active Substance: CARBIDOPA\ENTACAPONE\LEVODOPA
     Indication: PARKINSON^S DISEASE
     Dosage: (50+12.5+200)MG
     Route: 048
  2. DUODOPA [Suspect]
     Active Substance: CARBIDOPA\LEVODOPA
     Dosage: MORNING DOSE:5.2MG; CONTINUOUS RATE:0.5ML/H; EXTRA DOSE:0.5ML
     Route: 050
     Dates: start: 20190606, end: 2019
  3. ARTANE [Concomitant]
     Active Substance: TRIHEXYPHENIDYL HYDROCHLORIDE
     Indication: PARKINSON^S DISEASE
     Dosage: HALF DAILY
     Route: 048
  4. STALEVO [Concomitant]
     Active Substance: CARBIDOPA\ENTACAPONE\LEVODOPA
     Dosage: (75-18.75+200)MG
     Route: 048
  5. LYRICA [Concomitant]
     Active Substance: PREGABALIN
     Indication: TRIGEMINAL NEURALGIA
     Route: 048
  6. DUODOPA [Suspect]
     Active Substance: CARBIDOPA\LEVODOPA
     Dosage: MORNING DOSE: 5.2ML; CONTINUOUS RATE: 0.6ML/H; EXTRA DOSE:0.5ML
     Route: 050
     Dates: start: 20190624, end: 2019
  7. EUTHYROX [Concomitant]
     Active Substance: LEVOTHYROXINE SODIUM
     Indication: HYPOTHYROIDISM
     Route: 048
  8. DUODOPA [Suspect]
     Active Substance: CARBIDOPA\LEVODOPA
     Dosage: MORNING DOSE: 4.4ML; CONTINUOUS RATE: 1.0ML/H; EXTRA DOSE:0.5ML
     Route: 050
  9. DUODOPA [Suspect]
     Active Substance: CARBIDOPA\LEVODOPA
     Dosage: MORNING DOSE: 4.8ML; CONTINUOUS RATE: 0.9ML/H; EXTRA DOSE:0.5ML
     Route: 050
  10. LYRICA [Concomitant]
     Active Substance: PREGABALIN
     Indication: ORAL PAIN
  11. DUODOPA [Suspect]
     Active Substance: CARBIDOPA\LEVODOPA
     Indication: PARKINSON^S DISEASE
     Dosage: MORNING DOSE:5.2MG; CONTINUOUS RATE:0.5ML/H; EXTRA DOSE:0.5ML
     Route: 050
     Dates: start: 20190523, end: 20190606

REACTIONS (6)
  - Stoma site discharge [Recovered/Resolved]
  - Vomiting [Recovered/Resolved]
  - Constipation [Recovering/Resolving]
  - Stoma site discharge [Recovered/Resolved]
  - Cough [Recovered/Resolved]
  - Pyrexia [Recovered/Resolved]

NARRATIVE: CASE EVENT DATE: 20190531
